FAERS Safety Report 18480002 (Version 1)
Quarter: 2020Q4

REPORT INFORMATION
  Report Type: Report from Study
  Country: US (occurrence: US)
  Receive Date: 20201109
  Receipt Date: 20201109
  Transmission Date: 20210114
  Serious: Yes (Other)
  Sender: FDA-Public Use
  Company Number: US-VERTEX PHARMACEUTICALS-2020-021741

PATIENT
  Age: 54 Year
  Sex: Male

DRUGS (20)
  1. CARVEDILOL. [Concomitant]
     Active Substance: CARVEDILOL
  2. PREDNISONE. [Concomitant]
     Active Substance: PREDNISONE
  3. CRESEMBA [Concomitant]
     Active Substance: ISAVUCONAZONIUM SULFATE
  4. OMEPRAZOLE. [Concomitant]
     Active Substance: OMEPRAZOLE
  5. NASACORT [Concomitant]
     Active Substance: TRIAMCINOLONE ACETONIDE
  6. MAGNESIUM OXIDE. [Concomitant]
     Active Substance: MAGNESIUM OXIDE
  7. VITAMIN D [COLECALCIFEROL] [Concomitant]
     Active Substance: CHOLECALCIFEROL
     Dosage: 2000 UNITS
  8. CETRIZINE [Concomitant]
     Active Substance: CETIRIZINE HYDROCHLORIDE
  9. CREON [Concomitant]
     Active Substance: PANCRELIPASE AMYLASE\PANCRELIPASE LIPASE\PANCRELIPASE PROTEASE
  10. VELTASSA [Concomitant]
     Active Substance: PATIROMER
  11. TACROLIMUS. [Concomitant]
     Active Substance: TACROLIMUS
  12. PRAVASTATIN. [Concomitant]
     Active Substance: PRAVASTATIN
  13. FISH OIL [Concomitant]
     Active Substance: FISH OIL
  14. TRIKAFTA [Suspect]
     Active Substance: ELEXACAFTOR\IVACAFTOR\TEZACAFTOR
     Indication: CYSTIC FIBROSIS
     Dosage: 2 TAB (ELEXA 100 MG/ TEZA 50 MG/ IVA 75 MG) AM, 1 TAB (IVA 50 MG) PM; BID
     Route: 048
  15. ATOVAQUONE. [Concomitant]
     Active Substance: ATOVAQUONE
  16. MYCOPHENOLATE [Concomitant]
     Active Substance: MYCOPHENOLIC ACID
  17. SALINE NASAL MIST [Concomitant]
  18. CALCITRATE [Concomitant]
     Active Substance: CALCIUM CITRATE
  19. LANTUS [Concomitant]
     Active Substance: INSULIN GLARGINE
  20. AMLODIPINE [Concomitant]
     Active Substance: AMLODIPINE BESYLATE

REACTIONS (1)
  - Blood potassium increased [Recovered/Resolved]

NARRATIVE: CASE EVENT DATE: 202010
